FAERS Safety Report 24458885 (Version 1)
Quarter: 2024Q4

REPORT INFORMATION
  Report Type: Spontaneous
  Country: CL (occurrence: CL)
  Receive Date: 20241018
  Receipt Date: 20241018
  Transmission Date: 20250115
  Serious: No
  Sender: ROCHE
  Company Number: CL-ROCHE-3526031

PATIENT
  Age: 38 Year
  Sex: Female
  Weight: 92.0 kg

DRUGS (6)
  1. RITUXIMAB [Suspect]
     Active Substance: RITUXIMAB
     Indication: Multiple sclerosis
     Route: 042
     Dates: start: 20231110
  2. PREGABALIN [Concomitant]
     Active Substance: PREGABALIN
     Dates: start: 20231106
  3. B12 [Concomitant]
     Dates: start: 20231106
  4. ERGOCALCIFEROL [Concomitant]
     Active Substance: ERGOCALCIFEROL
     Dates: start: 20231106
  5. METFORMIN [Concomitant]
     Active Substance: METFORMIN HYDROCHLORIDE
  6. IRON [Concomitant]
     Active Substance: IRON
     Dates: start: 202402

REACTIONS (6)
  - Off label use [Unknown]
  - Throat irritation [Recovered/Resolved]
  - Nasal discomfort [Recovered/Resolved]
  - Skin burning sensation [Recovered/Resolved]
  - Eye irritation [Recovered/Resolved]
  - Bronchospasm [Recovered/Resolved]

NARRATIVE: CASE EVENT DATE: 20231110
